FAERS Safety Report 9742621 (Version 1)
Quarter: 2013Q4

REPORT INFORMATION
  Report Type: Spontaneous
  Country: US (occurrence: US)
  Receive Date: 20131210
  Receipt Date: 20131210
  Transmission Date: 20140711
  Serious: No
  Sender: FDA-Public Use
  Company Number: US-GILEAD-2009-0024694

PATIENT
  Sex: Female
  Weight: 65.77 kg

DRUGS (9)
  1. LETAIRIS [Suspect]
     Indication: PULMONARY ARTERIAL HYPERTENSION
     Route: 048
     Dates: start: 20090918
  2. TRENTAL [Concomitant]
  3. DIOVAN HCT [Concomitant]
  4. FENOFIBRATE [Concomitant]
  5. LIPITOR [Concomitant]
  6. FOLIC ACID [Concomitant]
  7. A-Z MULTIVITAMINS [Concomitant]
  8. ASPIRIN [Concomitant]
  9. CALCIUM [Concomitant]

REACTIONS (2)
  - Hypoaesthesia [Unknown]
  - Musculoskeletal stiffness [Unknown]
